FAERS Safety Report 10598278 (Version 3)
Quarter: 2015Q2

REPORT INFORMATION
  Report Type: Report from Study
  Country: TR (occurrence: TR)
  Receive Date: 20141121
  Receipt Date: 20150408
  Transmission Date: 20150821
  Serious: Yes (Other)
  Sender: FDA-Public Use
  Company Number: TR-NOVOPROD-405576

PATIENT
  Age: 37 Year
  Sex: Female
  Weight: 77 kg

DRUGS (5)
  1. ASPIRIN. [Concomitant]
     Active Substance: ASPIRIN
     Indication: ANTIPLATELET THERAPY
     Dosage: 1 DF, QD (1X1)
     Route: 048
     Dates: start: 201401
  2. HIBOR [Concomitant]
     Active Substance: BEMIPARIN SODIUM
     Indication: ANTIPLATELET THERAPY
     Dosage: 1 DF, QD (1X1)
     Route: 058
     Dates: start: 201401, end: 20140507
  3. INSULIN DETEMIR FLEXPEN [Suspect]
     Active Substance: INSULIN DETEMIR
     Indication: GESTATIONAL DIABETES
     Dosage: 16 IU, QD
     Route: 058
     Dates: start: 20140312, end: 20140507
  4. PROGESTAN [Concomitant]
     Active Substance: PROGESTERONE
     Indication: PROPHYLAXIS
     Dosage: 1 DF, TID (1X3)
     Route: 048
     Dates: start: 201401, end: 20140507
  5. NOVORAPID [Suspect]
     Active Substance: INSULIN ASPART
     Indication: GESTATIONAL DIABETES
     Dosage: 24 IU, QD
     Route: 058
     Dates: start: 20140312, end: 20140507

REACTIONS (2)
  - Stillbirth [Unknown]
  - Exposure during pregnancy [Recovered/Resolved]

NARRATIVE: CASE EVENT DATE: 20140312
